FAERS Safety Report 6732401-0 (Version None)
Quarter: 2010Q2

REPORT INFORMATION
  Report Type: 
  Country: None (occurrence: None)
  Receive Date: 20100519
  Receipt Date: 20100505
  Transmission Date: 20101027
  Serious: Yes (Hospitalization, Disabling, Other)
  Sender: FDA-Public Use
  Company Number: US-MERCK-1004USA01320

PATIENT
  Age: 61 Year
  Sex: Female
  Weight: 54 kg

DRUGS (4)
  1. FOSAMAX [Suspect]
     Indication: OSTEOPOROSIS
     Route: 048
     Dates: start: 20090401, end: 20100301
  2. CALCIUM (UNSPECIFIED) AND VITAMIN D (UNSPECIFIED) [Concomitant]
     Route: 065
     Dates: start: 20000601
  3. PREMARIN [Concomitant]
     Route: 065
     Dates: start: 20000601, end: 20081201
  4. FOSAMAX [Suspect]
     Route: 048
     Dates: start: 20000601, end: 20071201

REACTIONS (2)
  - FEMUR FRACTURE [None]
  - OSTEOARTHRITIS [None]
